FAERS Safety Report 18302719 (Version 1)
Quarter: 2020Q3

REPORT INFORMATION
  Report Type: Report from Study
  Country: AR (occurrence: AR)
  Receive Date: 20200923
  Receipt Date: 20200923
  Transmission Date: 20201103
  Serious: Yes (Hospitalization)
  Sender: FDA-Public Use
  Company Number: AR-BRISTOL-MYERS SQUIBB COMPANY-BMS-2020-022876

PATIENT
  Age: 74 Year
  Sex: Male

DRUGS (1)
  1. ABATACEPT [Suspect]
     Active Substance: ABATACEPT
     Indication: RHEUMATOID ARTHRITIS
     Dosage: 250 MILLIGRAM, QMO
     Route: 065
     Dates: start: 20050512

REACTIONS (6)
  - Pyrexia [Recovering/Resolving]
  - Blister [Recovering/Resolving]
  - Blood pressure decreased [Unknown]
  - Viral infection [Recovering/Resolving]
  - Off label use [Unknown]
  - Peau d^orange [Recovering/Resolving]

NARRATIVE: CASE EVENT DATE: 20200303
